FAERS Safety Report 12818255 (Version 4)
Quarter: 2016Q4

REPORT INFORMATION
  Report Type: Report from Study
  Country: CA (occurrence: CA)
  Receive Date: 20161006
  Receipt Date: 20161103
  Transmission Date: 20170207
  Serious: Yes (Hospitalization)
  Sender: FDA-Public Use
  Company Number: CA-ROCHE-1838187

PATIENT
  Age: 72 Year
  Sex: Female
  Weight: 85.1 kg

DRUGS (15)
  1. SERTRALINE [Concomitant]
     Active Substance: SERTRALINE HYDROCHLORIDE
     Indication: ANXIETY
     Route: 065
     Dates: start: 2000
  2. PENTASA [Concomitant]
     Active Substance: MESALAMINE
     Indication: CROHN^S DISEASE
     Route: 065
     Dates: start: 2013
  3. TYLENOL [Concomitant]
     Active Substance: ACETAMINOPHEN
     Indication: GOUT
     Route: 065
     Dates: start: 20160825
  4. VISMODEGIB [Suspect]
     Active Substance: VISMODEGIB
     Indication: MYELOFIBROSIS
     Dosage: DATE OF MOST RECENT DOSE OF VISMODEGIB: 02/OCT/2016, 11/OCT/2016
     Route: 048
     Dates: start: 20160707
  5. RUXOLITINIB [Suspect]
     Active Substance: RUXOLITINIB
     Route: 048
     Dates: start: 20161013, end: 20161015
  6. RUXOLITINIB [Suspect]
     Active Substance: RUXOLITINIB
     Route: 048
     Dates: start: 20161026
  7. METFORMIN [Concomitant]
     Active Substance: METFORMIN HYDROCHLORIDE
     Indication: TYPE 2 DIABETES MELLITUS
     Route: 065
     Dates: start: 2006
  8. TELMISARTAN. [Concomitant]
     Active Substance: TELMISARTAN
     Indication: HYPERTENSION
     Route: 065
     Dates: start: 20160702
  9. FUROSEMIDE. [Concomitant]
     Active Substance: FUROSEMIDE
     Indication: CARDIAC FAILURE CONGESTIVE
     Route: 065
     Dates: start: 20160101
  10. ROSUVASTATIN. [Concomitant]
     Active Substance: ROSUVASTATIN
     Indication: DYSLIPIDAEMIA
     Route: 065
     Dates: start: 2006
  11. RUXOLITINIB [Suspect]
     Active Substance: RUXOLITINIB
     Indication: MYELOFIBROSIS
     Dosage: DATE OF MOST RECENT DOSE OF RUXOLITINIB: 02/OCT/2016, 11/OCT/2016
     Route: 048
     Dates: start: 20160707
  12. TRAZODONE [Concomitant]
     Active Substance: TRAZODONE HYDROCHLORIDE
     Indication: ANXIETY
     Route: 065
     Dates: start: 2000
  13. ALLOPURINOL. [Concomitant]
     Active Substance: ALLOPURINOL
     Indication: GOUT
     Route: 065
     Dates: start: 201510
  14. VISMODEGIB [Suspect]
     Active Substance: VISMODEGIB
     Route: 048
     Dates: start: 20161026
  15. VISMODEGIB [Suspect]
     Active Substance: VISMODEGIB
     Route: 048
     Dates: start: 20161013, end: 20161015

REACTIONS (2)
  - Sepsis [Recovered/Resolved]
  - Lung infiltration [Not Recovered/Not Resolved]

NARRATIVE: CASE EVENT DATE: 20160929
